FAERS Safety Report 4627103-0 (Version None)
Quarter: 2005Q2

REPORT INFORMATION
  Report Type: 
  Country: None (occurrence: None)
  Receive Date: 20050401
  Receipt Date: 20050401
  Transmission Date: 20051028
  Serious: Yes (Hospitalization)
  Sender: FDA-Public Use
  Company Number: None

PATIENT
  Age: 60 Year
  Sex: Male
  Weight: 81 kg

DRUGS (18)
  1. DIGOXIN [Suspect]
     Indication: CARDIAC FAILURE CONGESTIVE
     Dosage: 0.25MG QDAY
  2. LISINOPRIL [Suspect]
     Indication: CARDIAC FAILURE CONGESTIVE
     Dosage: 10MG BID
  3. LISINOPRIL [Suspect]
     Indication: HYPERTENSION
     Dosage: 10MG BID
  4. ACCU-CHEK [Concomitant]
  5. AMITRIPTYLINE HCL TAB [Concomitant]
  6. NITROGLYCERIN [Concomitant]
  7. LANCET [Concomitant]
  8. ASPIRIN [Concomitant]
  9. ATENOLOL [Concomitant]
  10. DIGOXIN [Concomitant]
  11. GEMFIBROZIL [Concomitant]
  12. RANITIDINE [Concomitant]
  13. SIMVASTATIN [Concomitant]
  14. ALBUTEROL [Concomitant]
  15. IPRATROPIUM BROMIDE [Concomitant]
  16. LISINOPRIL [Concomitant]
  17. SERTRALINE [Concomitant]
  18. METFORMIN HCL [Concomitant]

REACTIONS (5)
  - BRADYCARDIA [None]
  - CARDIOACTIVE DRUG LEVEL ABOVE THERAPEUTIC [None]
  - CHRONIC OBSTRUCTIVE PULMONARY DISEASE [None]
  - HYPERKALAEMIA [None]
  - RENAL FAILURE ACUTE [None]
